FAERS Safety Report 17336228 (Version 1)
Quarter: 2020Q1

REPORT INFORMATION
  Report Type: Spontaneous
  Country: US (occurrence: US)
  Receive Date: 20200129
  Receipt Date: 20200129
  Transmission Date: 20200409
  Serious: Yes (Death, Hospitalization)
  Sender: FDA-Public Use
  Company Number: US-JNJFOC-20200134684

PATIENT
  Age: 32 Year
  Sex: Female

DRUGS (1)
  1. DIPHENHYDRAMINE HYDROCHLORIDE. [Suspect]
     Active Substance: DIPHENHYDRAMINE HYDROCHLORIDE
     Indication: SUICIDE ATTEMPT
     Route: 048

REACTIONS (16)
  - Blood pH increased [Fatal]
  - Bundle branch block right [Fatal]
  - Electrocardiogram QT prolonged [Fatal]
  - Blood sodium increased [Fatal]
  - Blood chloride increased [Fatal]
  - Blood glucose increased [Fatal]
  - Cardiac arrest [Fatal]
  - Nodal rhythm [Fatal]
  - Lung opacity [Fatal]
  - Seizure [Fatal]
  - PO2 decreased [Fatal]
  - Toxicity to various agents [Fatal]
  - Blood bicarbonate decreased [Fatal]
  - PCO2 increased [Fatal]
  - Ventricular tachycardia [Fatal]
  - Supraventricular tachycardia [Fatal]
